FAERS Safety Report 11714682 (Version 2)
Quarter: 2015Q4

REPORT INFORMATION
  Report Type: Report from Study
  Country: US (occurrence: US)
  Receive Date: 20151109
  Receipt Date: 20151227
  Transmission Date: 20160304
  Serious: Yes (Hospitalization)
  Sender: FDA-Public Use
  Company Number: US-MALLINCKRODT-T201504098

PATIENT
  Age: 32 Year
  Sex: Female
  Weight: 82 kg

DRUGS (18)
  1. MELOXICAM. [Concomitant]
     Active Substance: MELOXICAM
  2. REPOSITORY CORTICOTROPIN INJECTION [Suspect]
     Active Substance: CORTICOTROPIN
     Indication: SYSTEMIC LUPUS ERYTHEMATOSUS
     Dosage: 80 UNITS UP TO 5X/MONTH, PRN (FLARES) 6 DAYS APART
     Route: 030
     Dates: start: 20141128, end: 201508
  3. LEFLUNOMIDE. [Concomitant]
     Active Substance: LEFLUNOMIDE
     Dosage: 10 MG
  4. HYOSCYAMINE SULFATE. [Concomitant]
     Active Substance: HYOSCYAMINE SULFATE
  5. HYDROXYZINE HYDROCHLORIDE. [Concomitant]
     Active Substance: HYDROXYZINE HYDROCHLORIDE
  6. REPOSITORY CORTICOTROPIN INJECTION [Suspect]
     Active Substance: CORTICOTROPIN
     Dosage: 80 UNITS UP TO 5X/MONTH, PRN (FLARES) 6 DAYS APART
     Route: 030
  7. PLAQUENIL [Concomitant]
     Active Substance: HYDROXYCHLOROQUINE SULFATE
  8. LEFLUNOMIDE. [Concomitant]
     Active Substance: LEFLUNOMIDE
     Dosage: 20 MG
  9. MELATONIN [Concomitant]
     Active Substance: MELATONIN
  10. NEXPLANON [Concomitant]
     Active Substance: ETONOGESTREL
  11. DEPAKOTE [Concomitant]
     Active Substance: DIVALPROEX SODIUM
  12. SERTRALINE [Concomitant]
     Active Substance: SERTRALINE HYDROCHLORIDE
  13. SUMATRIPTAN. [Concomitant]
     Active Substance: SUMATRIPTAN
     Dosage: PRN
  14. ZANTAC [Concomitant]
     Active Substance: RANITIDINE HYDROCHLORIDE
  15. CYCLOBENZAPRINE [Concomitant]
     Active Substance: CYCLOBENZAPRINE
  16. METHYLPREDNISOLONE. [Concomitant]
     Active Substance: METHYLPREDNISOLONE
     Dosage: 20 MG PRIN
  17. REPOSITORY CORTICOTROPIN INJECTION [Suspect]
     Active Substance: CORTICOTROPIN
     Indication: RHEUMATOID ARTHRITIS
     Dosage: 80 UNITS UP TO 5X/MONTH, PRN (FLARES) 6 DAYS APART
     Route: 030
     Dates: start: 201509, end: 20150911
  18. VITAMIN D3 [Concomitant]
     Active Substance: CHOLECALCIFEROL

REACTIONS (19)
  - Dysphonia [Recovered/Resolved]
  - Bone loss [Not Recovered/Not Resolved]
  - Rectal haemorrhage [Recovering/Resolving]
  - Weight increased [Not Recovered/Not Resolved]
  - Decreased appetite [Not Recovered/Not Resolved]
  - Drug dose omission [Not Recovered/Not Resolved]
  - Musculoskeletal stiffness [Not Recovered/Not Resolved]
  - Gastroenteritis viral [Recovered/Resolved]
  - Head injury [Recovered/Resolved]
  - Fall [Recovered/Resolved]
  - Bipolar II disorder [Recovering/Resolving]
  - Foot fracture [Not Recovered/Not Resolved]
  - Anal fissure [Recovering/Resolving]
  - Wound [Not Recovered/Not Resolved]
  - Bronchitis [Recovered/Resolved]
  - Suicidal ideation [Recovering/Resolving]
  - Post-traumatic stress disorder [Recovering/Resolving]
  - Influenza like illness [Recovered/Resolved]
  - Fibromyalgia [Recovered/Resolved]

NARRATIVE: CASE EVENT DATE: 201508
